FAERS Safety Report 4289369-9 (Version None)
Quarter: 2004Q1

REPORT INFORMATION
  Report Type: 
  Country: None (occurrence: None)
  Receive Date: 20040205
  Receipt Date: 20040128
  Transmission Date: 20041129
  Serious: Yes (Hospitalization, Disabling, Other)
  Sender: FDA-Public Use
  Company Number: 2002109669US

PATIENT
  Sex: Female

DRUGS (2)
  1. CYTOTEC [Suspect]
     Indication: INDUCED LABOUR
     Dosage: SINGLE
     Dates: start: 20000424
  2. PITOCIN [Concomitant]

REACTIONS (32)
  - APGAR SCORE LOW [None]
  - AREFLEXIA [None]
  - ASPIRATION [None]
  - BRONCHITIS [None]
  - BRONCHOSPASM [None]
  - CAESAREAN SECTION [None]
  - CLONUS [None]
  - CONVULSION NEONATAL [None]
  - DEVELOPMENTAL DELAY [None]
  - DYSPHAGIA [None]
  - FOETAL HEART RATE DECELERATION [None]
  - FOETAL HEART RATE DISORDER [None]
  - GASTROOESOPHAGEAL REFLUX DISEASE [None]
  - GRAND MAL CONVULSION [None]
  - HERNIA [None]
  - HIATUS HERNIA [None]
  - HIGH ARCHED PALATE [None]
  - HYPERTONIA [None]
  - HYPOXIC ENCEPHALOPATHY [None]
  - ISCHAEMIA [None]
  - LACRIMATION DECREASED [None]
  - LOW SET EARS [None]
  - MATERNAL DRUGS AFFECTING FOETUS [None]
  - MICROCEPHALY [None]
  - MICROGNATHIA [None]
  - NEONATAL DISORDER [None]
  - PSYCHOMOTOR RETARDATION [None]
  - RESPIRATORY DISORDER [None]
  - RESPIRATORY SYNCYTIAL VIRUS INFECTION [None]
  - TREMOR NEONATAL [None]
  - UTERINE RUPTURE [None]
  - VISUAL ACUITY REDUCED [None]
